FAERS Safety Report 7751069-8 (Version None)
Quarter: 2011Q3

REPORT INFORMATION
  Report Type: 
  Country: None (occurrence: None)
  Receive Date: 20110914
  Receipt Date: 20110909
  Transmission Date: 20111222
  Serious: Yes (Hospitalization, Other)
  Sender: FDA-Public Use
  Company Number: DE-ABBOTT-11P-062-0853611-00

PATIENT
  Sex: Female

DRUGS (3)
  1. BUDESONIDE [Concomitant]
     Indication: CROHN'S DISEASE
  2. METOCLOPRAMIDE [Concomitant]
     Indication: CROHN'S DISEASE
     Route: 048
  3. HUMIRA [Suspect]
     Indication: CROHN'S DISEASE
     Route: 058
     Dates: start: 20081118

REACTIONS (2)
  - INTESTINAL STENOSIS [None]
  - CROHN'S DISEASE [None]
